FAERS Safety Report 5484909-6 (Version None)
Quarter: 2007Q4

REPORT INFORMATION
  Report Type: 
  Country: None (occurrence: None)
  Receive Date: 20071011
  Receipt Date: 20071001
  Transmission Date: 20080405
  Serious: Yes (Other)
  Sender: FDA-Public Use
  Company Number: S07-USA-03629-01

PATIENT
  Age: 68 Year
  Sex: Male

DRUGS (6)
  1. NAMENDA [Suspect]
     Indication: COGNITIVE DISORDER
     Dosage: 5 MG BID PO
     Route: 048
     Dates: start: 20070821, end: 20070827
  2. NAMENDA [Suspect]
     Indication: COGNITIVE DISORDER
     Dosage: 5 MG QD PO
     Route: 048
     Dates: start: 20070814, end: 20070820
  3. LIPITOR [Concomitant]
  4. ALLEGRA-D (FEXOFENADINE AND PSEUDOEPHEDRINE) [Concomitant]
  5. NASONEX [Concomitant]
  6. ARICEPT [Concomitant]

REACTIONS (1)
  - RETINAL TEAR [None]
